FAERS Safety Report 9464657 (Version 1)
Quarter: 2013Q3

REPORT INFORMATION
  Report Type: Report from Study
  Country: DE (occurrence: DE)
  Receive Date: 20130819
  Receipt Date: 20130819
  Transmission Date: 20140515
  Serious: Yes (Hospitalization)
  Sender: FDA-Public Use
  Company Number: DE-ROCHE-1259335

PATIENT
  Age: 46 Year
  Sex: Male
  Weight: 77.8 kg

DRUGS (1)
  1. VISMODEGIB [Suspect]
     Indication: BASAL CELL CARCINOMA
     Dosage: LAST DOSE PRIOR TO SAE WAS 04/AUG/2013
     Route: 048
     Dates: start: 20130527, end: 20130805

REACTIONS (1)
  - Pneumonia [Not Recovered/Not Resolved]
